FAERS Safety Report 21356486 (Version 2)
Quarter: 2022Q3

REPORT INFORMATION
  Report Type: Spontaneous
  Country: US (occurrence: US)
  Receive Date: 20220920
  Receipt Date: 20220923
  Transmission Date: 20221027
  Serious: No
  Sender: FDA-Public Use
  Company Number: US-AIMMUNE THERAPEUTICS, INC.-2022AIMT02321

PATIENT

DRUGS (8)
  1. PALFORZIA [Suspect]
     Active Substance: PEANUT
     Indication: Food allergy
     Dosage: IDE (0.5-6MG), ONCE
     Route: 048
     Dates: start: 20210210, end: 20210210
  2. PALFORZIA [Suspect]
     Active Substance: PEANUT
     Dosage: 300 MG, 1X/DAY
     Route: 048
     Dates: start: 20210708, end: 20220815
  3. PALFORZIA [Suspect]
     Active Substance: PEANUT
     Dosage: 300 MG, ONCE, LAST DOESE PRIOR ISSUES OF TAKING THE DAILY DOSES DUE TO SCHEDULING
     Route: 048
  4. PALFORZIA [Suspect]
     Active Substance: PEANUT
     Dosage: 300 MG, ONCE, LAST DOSE PRIOR ONSET OF FEELING SOMETHING STUCK IN THROAT, RECURRING COUGH, RECURRING
     Route: 048
     Dates: start: 20220510, end: 20220510
  5. PALFORZIA [Suspect]
     Active Substance: PEANUT
     Dosage: 300 MG, ONCE, LAST DOSE PRIOR ONSET OF CHEST PAIN, ITCHY EYES, RECURRING COUGH, RECURRING WHEEZING A
     Route: 048
     Dates: start: 20220815, end: 20220815
  6. PALFORZIA [Suspect]
     Active Substance: PEANUT
     Dosage: 300 MG, 1X/DAY, RESTARTED
     Route: 048
     Dates: start: 20220817, end: 20220824
  7. ZYRTEC [Concomitant]
     Active Substance: CETIRIZINE HYDROCHLORIDE
     Indication: Seasonal allergy
     Dosage: 5-10 ML, 1X/DAY
  8. EPIPEN [Concomitant]
     Active Substance: EPINEPHRINE
     Indication: Food allergy
     Dosage: 0.3 MG

REACTIONS (8)
  - Sensation of foreign body [Recovered/Resolved]
  - Unevaluable event [Recovered/Resolved]
  - Chest pain [Recovered/Resolved]
  - Eye pruritus [Recovered/Resolved]
  - Product use complaint [Recovered/Resolved]
  - Cough [Recovered/Resolved]
  - Wheezing [Recovered/Resolved]
  - Abdominal pain upper [Recovered/Resolved]

NARRATIVE: CASE EVENT DATE: 20220510
